FAERS Safety Report 25037711 (Version 1)
Quarter: 2025Q1

REPORT INFORMATION
  Report Type: Spontaneous
  Country: US (occurrence: US)
  Receive Date: 20250304
  Receipt Date: 20250304
  Transmission Date: 20250409
  Serious: Yes (Other)
  Sender: FRESENIUS MEDICAL CARE
  Company Number: US-FMCRTG-FMC-2502-000187

PATIENT
  Age: 59 Year
  Sex: Male
  Weight: 76 kg

DRUGS (17)
  1. DELFLEX WITH DEXTROSE 1.5% LOW MAGNESIUM LOW CALCIUM [Suspect]
     Active Substance: CALCIUM CHLORIDE\DEXTROSE\MAGNESIUM CHLORIDE\SODIUM CHLORIDE\SODIUM LACTATE
     Indication: End stage renal disease
     Route: 033
  2. DELFLEX WITH DEXTROSE 2.5% LOW MAGNESIUM LOW CALCIUM [Suspect]
     Active Substance: CALCIUM CHLORIDE\DEXTROSE\MAGNESIUM CHLORIDE\SODIUM CHLORIDE\SODIUM LACTATE
     Indication: End stage renal disease
     Route: 033
  3. DELFLEX WITH DEXTROSE 4.25% LOW MAGNESIUM LOW CALCIUM [Suspect]
     Active Substance: CALCIUM CHLORIDE\DEXTROSE\MAGNESIUM CHLORIDE\SODIUM CHLORIDE\SODIUM LACTATE
     Indication: End stage renal disease
     Route: 033
  4. ACULAR [Concomitant]
     Active Substance: KETOROLAC TROMETHAMINE
  5. ATORVASTATIN [Concomitant]
     Active Substance: ATORVASTATIN
  6. CALCITRIOL [Concomitant]
     Active Substance: CALCITRIOL
  7. CARVEDILOL [Concomitant]
     Active Substance: CARVEDILOL
  8. CEFTAZIDIME [Concomitant]
     Active Substance: CEFTAZIDIME
  9. ESOMEPRAZOLE [Concomitant]
     Active Substance: ESOMEPRAZOLE
  10. FLUCONAZOLE [Concomitant]
     Active Substance: FLUCONAZOLE
  11. GENTAMICIN [Concomitant]
     Active Substance: GENTAMICIN
  12. PRED FORTE [Concomitant]
     Active Substance: PREDNISOLONE ACETATE
  13. REGLAN [Concomitant]
     Active Substance: METOCLOPRAMIDE HYDROCHLORIDE
  14. TORSEMIDE [Concomitant]
     Active Substance: TORSEMIDE
  15. TRAZODONE [Concomitant]
     Active Substance: TRAZODONE HYDROCHLORIDE
  16. VALSARTAN [Concomitant]
     Active Substance: VALSARTAN
  17. VELPHORO [Concomitant]
     Active Substance: SUCROFERRIC OXYHYDROXIDE

REACTIONS (3)
  - Peritonitis bacterial [Unknown]
  - Fluid retention [Unknown]
  - Product dose omission issue [Recovered/Resolved]
